FAERS Safety Report 22266201 (Version 2)
Quarter: 2023Q2

REPORT INFORMATION
  Report Type: Spontaneous
  Country: BR (occurrence: BR)
  Receive Date: 20230428
  Receipt Date: 20230509
  Transmission Date: 20230721
  Serious: Yes (Life-Threatening, Disabling)
  Sender: FDA-Public Use
  Company Number: BR-ORGANON-O2304BRA002081

PATIENT
  Sex: Male
  Weight: 93 kg

DRUGS (10)
  1. REMERON SOLTAB [Suspect]
     Active Substance: MIRTAZAPINE
     Indication: Generalised anxiety disorder
     Dosage: 1 TABLET AT NIGHT
     Route: 048
     Dates: start: 20230403, end: 20230412
  2. REMERON SOLTAB [Suspect]
     Active Substance: MIRTAZAPINE
     Indication: Generalised anxiety disorder
     Dosage: 1 TABLET AT NIGHT
     Route: 048
     Dates: start: 20230403, end: 20230412
  3. LOSARTAN POTASSIUM [Concomitant]
     Active Substance: LOSARTAN POTASSIUM
     Indication: Blood pressure abnormal
     Dosage: 1 TABLETS DAILY (IN THE MORNING AND AT NIGHT)
     Route: 048
  4. PREGABALIN [Concomitant]
     Active Substance: PREGABALIN
     Indication: Anxiety
     Dosage: 2 TABLETS DAILY (IN THE MORNING AND AT NIGHT), (ALSO REPORTED AS USING 4 YEARS AGO)
     Route: 048
     Dates: start: 202201
  5. SYNTHROID [Concomitant]
     Active Substance: LEVOTHYROXINE SODIUM
     Indication: Thyroid hormone replacement therapy
     Dosage: 1 TABLET DAILY (IN THE MORNING)
     Route: 048
     Dates: start: 2002
  6. CHLORTHALIDONE [Concomitant]
     Active Substance: CHLORTHALIDONE
     Indication: Hypertension
     Dosage: 1 TABLET DAILY (IN THE MORNING)
     Route: 048
     Dates: start: 2006
  7. METFORMIN [Concomitant]
     Active Substance: METFORMIN HYDROCHLORIDE
     Indication: Glucose tolerance impaired
     Dosage: 1 TABLET DAILY (AFTER LUNCH)
     Route: 048
     Dates: start: 2007
  8. ATORVASTATIN [Concomitant]
     Active Substance: ATORVASTATIN
     Indication: Hypercholesterolaemia
     Dosage: 1 TABLET DAILY (AT NIGHT)
     Route: 048
     Dates: start: 2007
  9. TAMSULOSIN HYDROCHLORIDE [Concomitant]
     Active Substance: TAMSULOSIN HYDROCHLORIDE
     Indication: Benign prostatic hyperplasia
     Dosage: 1 TABLET DAILY (AT NIGHT),
     Route: 048
     Dates: start: 2021
  10. CALCITRANS [CALCIUM GLUCEPTATE;CALCIUM GLUCONATE;CALCIUM SACCHARATE] [Concomitant]
     Indication: Hypocalcaemia
     Dosage: 2 CHEWABLE CAPSULES SWALLOWED TOGETHER
     Route: 048
     Dates: start: 2002

REACTIONS (10)
  - Feeling abnormal [Not Recovered/Not Resolved]
  - Drug hypersensitivity [Not Recovered/Not Resolved]
  - Vision blurred [Not Recovered/Not Resolved]
  - Movement disorder [Not Recovered/Not Resolved]
  - Malaise [Not Recovered/Not Resolved]
  - Irritability [Not Recovered/Not Resolved]
  - Confusional state [Not Recovered/Not Resolved]
  - Nausea [Not Recovered/Not Resolved]
  - Anxiety [Not Recovered/Not Resolved]
  - Myalgia [Not Recovered/Not Resolved]
